FAERS Safety Report 7634000-5 (Version None)
Quarter: 2011Q3

REPORT INFORMATION
  Report Type: 
  Country: None (occurrence: None)
  Receive Date: 20110725
  Receipt Date: 20110715
  Transmission Date: 20111222
  Serious: Yes (Death)
  Sender: FDA-Public Use
  Company Number: US-GENZYME-CLOF-1001697

PATIENT
  Age: 67 Year

DRUGS (13)
  1. TACROLIMUS [Suspect]
     Indication: BONE MARROW CONDITIONING REGIMEN
     Dosage: UNK ON DAY -2
     Route: 042
  2. MELPHALAN HYDROCHLORIDE [Suspect]
     Indication: BONE MARROW CONDITIONING REGIMEN
     Dosage: 140 MG/M2 QD ON DAY -2
     Route: 042
  3. TACROLIMUS [Suspect]
     Indication: PROPHYLAXIS AGAINST GRAFT VERSUS HOST DISEASE
     Dosage: UNK
     Route: 048
  4. TACROLIMUS [Suspect]
     Indication: HAEMATOLOGICAL MALIGNANCY
  5. CAMPATH [Suspect]
     Indication: BONE MARROW CONDITIONING REGIMEN
     Dosage: 20 MG QDX5 ON DAY -7 THROUGH DAY -3 OVER 1 HOUR
     Route: 042
  6. CLOLAR [Suspect]
     Indication: HAEMATOLOGICAL MALIGNANCY
  7. MELPHALAN HYDROCHLORIDE [Suspect]
     Indication: HAEMATOLOGICAL MALIGNANCY
  8. FILGRASTIM [Concomitant]
     Indication: SUPPORTIVE CARE
     Dosage: 5 MCG/KG, QD STARTING ON DAY 1
     Route: 058
  9. CAMPATH [Suspect]
     Indication: HAEMATOLOGICAL MALIGNANCY
  10. ACYCLOVIR [Concomitant]
     Indication: INFECTION PROPHYLAXIS
  11. TRIMETHOPRIM + SULFAMETHOXAZOLE [Concomitant]
     Indication: INFECTION PROPHYLAXIS
     Dosage: UNK PRE-TRANSPLANT UNTIL 1 YEAR POST-TRANSPLANT
  12. CLOLAR [Suspect]
     Indication: BONE MARROW CONDITIONING REGIMEN
     Dosage: QDX5 ON DAYS -7 THROUGH -3
     Route: 042
  13. BLOOD AND RELATED PRODUCTS [Concomitant]
     Indication: ANAEMIA PROPHYLAXIS

REACTIONS (1)
  - CIRCULATORY COLLAPSE [None]
